FAERS Safety Report 20656755 (Version 1)
Quarter: 2022Q1

REPORT INFORMATION
  Report Type: Spontaneous
  Country: NL (occurrence: NL)
  Receive Date: 20220331
  Receipt Date: 20220331
  Transmission Date: 20220423
  Serious: Yes (Hospitalization, Other)
  Sender: FDA-Public Use
  Company Number: NL-NOVOPROD-902613

PATIENT
  Age: 28 Year
  Sex: Female

DRUGS (1)
  1. NOVOSEVEN [Suspect]
     Active Substance: COAGULATION FACTOR VIIA RECOMBINANT HUMAN
     Indication: Von Willebrand^s disease
     Dosage: 90?G/KG
     Route: 065

REACTIONS (4)
  - Vaginal haemorrhage [Unknown]
  - Endometritis [Unknown]
  - Drug ineffective [Unknown]
  - Off label use [Unknown]
